FAERS Safety Report 4934862-6 (Version None)
Quarter: 2006Q1

REPORT INFORMATION
  Report Type: 
  Country: None (occurrence: None)
  Receive Date: 20060302
  Receipt Date: 20060224
  Transmission Date: 20060701
  Serious: Yes (Hospitalization)
  Sender: FDA-Public Use
  Company Number: S06-USA-00546-01

PATIENT
  Age: 78 Year
  Sex: Female

DRUGS (3)
  1. LEXAPRO [Suspect]
     Indication: DEPRESSION
     Dates: start: 20060201
  2. DESSICARE (NOS) [Concomitant]
  3. FOSAMAX [Concomitant]

REACTIONS (6)
  - BLOOD MAGNESIUM ABNORMAL [None]
  - BLOOD POTASSIUM ABNORMAL [None]
  - BLOOD SODIUM ABNORMAL [None]
  - CHEST PAIN [None]
  - ELECTROLYTE IMBALANCE [None]
  - SHOULDER PAIN [None]
